FAERS Safety Report 9690694 (Version 1)
Quarter: 2013Q4

REPORT INFORMATION
  Report Type: Spontaneous
  Country: US (occurrence: US)
  Receive Date: 20131115
  Receipt Date: 20131115
  Transmission Date: 20140711
  Serious: Yes (Hospitalization)
  Sender: FDA-Public Use
  Company Number: US-TEVA-443605USA

PATIENT
  Sex: Male
  Weight: 69.92 kg

DRUGS (2)
  1. TREANDA [Suspect]
     Indication: HODGKIN^S DISEASE
     Dates: start: 20130820
  2. BLOOD PRESSURE MED [Concomitant]
     Indication: HYPERTENSION

REACTIONS (5)
  - Convulsion [Recovered/Resolved]
  - Fall [Recovered/Resolved]
  - Confusional state [Recovered/Resolved]
  - Disorientation [Recovered/Resolved]
  - Dizziness [Recovered/Resolved]
